FAERS Safety Report 5445526-7 (Version None)
Quarter: 2007Q3

REPORT INFORMATION
  Report Type: 
  Country: None (occurrence: None)
  Receive Date: 20070906
  Receipt Date: 20070822
  Transmission Date: 20080115
  Serious: No
  Sender: FDA-Public Use
  Company Number: US-BOEHRINGER INGELHEIM PHARMACEUTICALS, INC.-2007-BP-07329BP

PATIENT
  Sex: Female

DRUGS (7)
  1. SPIRIVA [Suspect]
     Indication: EMPHYSEMA
     Route: 055
     Dates: start: 20060101
  2. SPIRIVA [Suspect]
     Indication: DYSPNOEA
  3. REQUIP [Concomitant]
  4. HYDROCODONE BITARTRATE [Concomitant]
  5. LEXAPRO [Concomitant]
  6. QUININE SULFATE [Concomitant]
     Indication: MUSCLE SPASMS
  7. VITAMINS [Concomitant]

REACTIONS (2)
  - DYSPNOEA [None]
  - THERAPEUTIC RESPONSE DECREASED [None]
